FAERS Safety Report 5825640-4 (Version None)
Quarter: 2008Q3

REPORT INFORMATION
  Report Type: 
  Country: None (occurrence: None)
  Receive Date: 20080729
  Receipt Date: 20080728
  Transmission Date: 20090109
  Serious: Yes (Other)
  Sender: FDA-Public Use
  Company Number: A0713969A

PATIENT
  Age: 63 Year
  Sex: Female

DRUGS (4)
  1. ALLI [Suspect]
     Indication: WEIGHT LOSS DIET
     Route: 048
     Dates: start: 20071101
  2. AMLODIPINE [Concomitant]
  3. BENDROFLUMETHIAZIDE [Concomitant]
  4. ALENDRONIC ACID [Concomitant]

REACTIONS (8)
  - BASAL CELL CARCINOMA [None]
  - DRUG INEFFECTIVE [None]
  - DRY SKIN [None]
  - ERYTHEMA [None]
  - FATIGUE [None]
  - JOINT SPRAIN [None]
  - MALAISE [None]
  - WEIGHT INCREASED [None]
